FAERS Safety Report 9467978 (Version 1)
Quarter: 2013Q3

REPORT INFORMATION
  Report Type: Report from Study
  Country: US (occurrence: US)
  Receive Date: 20130821
  Receipt Date: 20130821
  Transmission Date: 20140515
  Serious: Yes (Hospitalization, Other)
  Sender: FDA-Public Use
  Company Number: US-US-EMD SERONO, INC.-7231399

PATIENT
  Age: 39 Year
  Sex: Female

DRUGS (3)
  1. REBIF [Suspect]
     Indication: MULTIPLE SCLEROSIS
     Route: 058
     Dates: start: 20130417, end: 201306
  2. PROZAC [Concomitant]
     Indication: DEPRESSION
  3. XANAX [Concomitant]
     Indication: ANXIETY

REACTIONS (6)
  - Cholelithiasis [Recovering/Resolving]
  - Gastric ulcer [Not Recovered/Not Resolved]
  - Haematochezia [Unknown]
  - Anxiety [Unknown]
  - Central nervous system lesion [Unknown]
  - Injection site bruising [Unknown]
